FAERS Safety Report 10702584 (Version 1)
Quarter: 2015Q1

REPORT INFORMATION
  Report Type: Spontaneous
  Country: CN (occurrence: CN)
  Receive Date: 20150109
  Receipt Date: 20150109
  Transmission Date: 20150721
  Serious: Yes (Life-Threatening)
  Sender: FDA-Public Use
  Company Number: CN-ASTRAZENECA-2015SE01999

PATIENT
  Age: 70 Year
  Sex: Female

DRUGS (6)
  1. IPRATROPIUM BROMIDE. [Suspect]
     Active Substance: IPRATROPIUM BROMIDE
     Dosage: NEBULIZATION 1 VIAL
     Route: 065
     Dates: start: 20150107
  2. XUESHUANTONG(CHINESE PATENT DRUG) [Concomitant]
  3. CEFPERAZONE-SULBACTAM SODIUM [Concomitant]
  4. PULMICORT RESPULES [Suspect]
     Active Substance: BUDESONIDE
     Route: 055
     Dates: start: 20150107
  5. TANREQING(CHINESE PATENT DRUG) [Concomitant]
  6. AMBROXOL [Concomitant]
     Active Substance: AMBROXOL

REACTIONS (2)
  - Anaphylactic shock [Unknown]
  - Loss of consciousness [Recovered/Resolved]

NARRATIVE: CASE EVENT DATE: 20150107
